FAERS Safety Report 7166180-2 (Version None)
Quarter: 2010Q4

REPORT INFORMATION
  Report Type: 
  Country: None (occurrence: None)
  Receive Date: 20101203
  Receipt Date: 20101122
  Transmission Date: 20110411
  Serious: No
  Sender: FDA-Public Use
  Company Number: 022566

PATIENT
  Sex: Male
  Weight: 90.7 kg

DRUGS (10)
  1. KEPPRA [Suspect]
     Indication: CONVULSION
     Dosage: SEE IMAGE
     Route: 048
     Dates: start: 20090101, end: 20101117
  2. KEPPRA [Suspect]
     Indication: CONVULSION
     Dosage: SEE IMAGE
     Route: 048
     Dates: start: 20101117, end: 20101117
  3. KEPPRA [Suspect]
     Indication: CONVULSION
     Dosage: SEE IMAGE
     Route: 048
     Dates: start: 20101118
  4. VITAMIN D [Suspect]
     Indication: VITAMIN D DEFICIENCY
     Dosage: (50,000  UNITS FOR 6 WEEKS ORAL), (1000 MG, 1000 MG DAILY)
     Route: 048
     Dates: start: 20101115
  5. WARFARIN SODIUM [Concomitant]
  6. LIPITOR [Concomitant]
  7. TOPROL-XL [Concomitant]
  8. ALTACE [Concomitant]
  9. CADUET [Concomitant]
  10. FLOMAX [Concomitant]

REACTIONS (1)
  - CONVULSION [None]
